FAERS Safety Report 9548354 (Version 1)
Quarter: 2013Q2

REPORT INFORMATION
  Report Type: Spontaneous
  Country: US (occurrence: None)
  Receive Date: 20130626
  Receipt Date: 20130626
  Transmission Date: 20140414
  Serious: No
  Sender: FDA-Public Use
  Company Number: 823010

PATIENT
  Age: 30 Year
  Sex: Female

DRUGS (2)
  1. PHENYTOIN [Suspect]
     Indication: CONVULSION
     Dates: start: 2007, end: 2007
  2. PHENYTOIN SODIUM EXTENDED [Suspect]
     Indication: CONVULSION
     Route: 048
     Dates: start: 2007, end: 20071105

REACTIONS (1)
  - Stevens-Johnson syndrome [None]
